FAERS Safety Report 6047214-5 (Version None)
Quarter: 2009Q1

REPORT INFORMATION
  Report Type: 
  Country: None (occurrence: None)
  Receive Date: 20090121
  Receipt Date: 20080813
  Transmission Date: 20090719
  Serious: Yes (Hospitalization)
  Sender: FDA-Public Use
  Company Number: A-US2008-21274

PATIENT
  Age: 53 Year
  Sex: Male

DRUGS (1)
  1. TRACLEER [Suspect]
     Indication: DRUG USE FOR UNKNOWN INDICATION
     Dosage: ORAL
     Route: 048

REACTIONS (3)
  - PHARYNGEAL OEDEMA [None]
  - RASH [None]
  - SINUS CONGESTION [None]
